FAERS Safety Report 6893250-6 (Version None)
Quarter: 2010Q3

REPORT INFORMATION
  Report Type: 
  Country: None (occurrence: None)
  Receive Date: 20100731
  Receipt Date: 20090720
  Transmission Date: 20110219
  Serious: No
  Sender: FDA-Public Use
  Company Number: US-PFIZER INC-2009205471

PATIENT
  Sex: Male
  Weight: 149.66 kg

DRUGS (6)
  1. CAVERJECT [Suspect]
     Indication: ERECTILE DYSFUNCTION
     Dosage: 20 UG, UNK
     Dates: start: 20070101
  2. CAVERJECT [Suspect]
     Dosage: 20 UG, UNK
     Dates: start: 20090101
  3. PROZAC [Concomitant]
     Indication: DEPRESSION
     Dosage: UNK
  4. WELLBUTRIN [Concomitant]
     Indication: DEPRESSION
     Dosage: UNK
  5. NEBIVOLOL [Concomitant]
     Indication: HYPERTENSION
     Dosage: UNK
  6. NEXIUM [Concomitant]
     Indication: GASTROOESOPHAGEAL REFLUX DISEASE
     Dosage: UNK

REACTIONS (1)
  - DRUG INEFFECTIVE [None]
